FAERS Safety Report 10353630 (Version 4)
Quarter: 2014Q4

REPORT INFORMATION
  Report Type: Spontaneous
  Country: GB (occurrence: GB)
  Receive Date: 20140731
  Receipt Date: 20141224
  Transmission Date: 20150528
  Serious: Yes (Other)
  Sender: FDA-Public Use
  Company Number: GB-RANBAXY-2014RR-83942

PATIENT

DRUGS (1)
  1. ISOTRETINOIN [Suspect]
     Active Substance: ISOTRETINOIN
     Indication: ACNE
     Dosage: 2 LOTS OF 60MG AT 8 WEEKS INTERVALS
     Route: 048
     Dates: start: 20140312, end: 20140625

REACTIONS (3)
  - Pregnancy [Unknown]
  - Abortion induced [Unknown]
  - Off label use [Unknown]
